FAERS Safety Report 8505724-2 (Version None)
Quarter: 2012Q3

REPORT INFORMATION
  Report Type: 
  Country: None (occurrence: None)
  Receive Date: 20120712
  Receipt Date: 20120706
  Transmission Date: 20120928
  Serious: Yes (Other)
  Sender: FDA-Public Use
  Company Number: US-009507513-1207USA001116

PATIENT

DRUGS (1)
  1. FOSAMAX [Suspect]
     Dosage: UNK
     Dates: start: 20010301, end: 20110101

REACTIONS (1)
  - FEMUR FRACTURE [None]
